FAERS Safety Report 14864955 (Version 1)
Quarter: 2018Q2

REPORT INFORMATION
  Report Type: Spontaneous
  Country: US (occurrence: US)
  Receive Date: 20180508
  Receipt Date: 20180508
  Transmission Date: 20180711
  Serious: Yes (Hospitalization)
  Sender: FDA-Public Use
  Company Number: US-B.I. PHARMACEUTICALS,INC./RIDGEFIELD-2018-BI-024673

PATIENT
  Age: 79 Year
  Sex: Female
  Weight: 57.8 kg

DRUGS (2)
  1. CAPECITABINE. [Concomitant]
     Active Substance: CAPECITABINE
     Indication: PRODUCT USED FOR UNKNOWN INDICATION
     Dosage: 1000MG/M2
     Route: 065
     Dates: start: 20180412
  2. AFATINIB [Suspect]
     Active Substance: AFATINIB
     Indication: BILIARY CANCER METASTATIC
     Route: 048
     Dates: start: 20180412, end: 20180430

REACTIONS (4)
  - Abdominal pain [Unknown]
  - Nausea [Unknown]
  - Clostridium difficile infection [Recovered/Resolved]
  - Intestinal obstruction [Unknown]

NARRATIVE: CASE EVENT DATE: 20180430
